FAERS Safety Report 4980064-7 (Version None)
Quarter: 2006Q2

REPORT INFORMATION
  Report Type: 
  Country: None (occurrence: None)
  Receive Date: 20060421
  Receipt Date: 20060417
  Transmission Date: 20061013
  Serious: Yes (Other)
  Sender: FDA-Public Use
  Company Number: US-MERCK-0604USA03067

PATIENT
  Sex: Female

DRUGS (2)
  1. VIOXX [Suspect]
     Indication: PAIN
     Route: 048
     Dates: start: 20020201, end: 20040201
  2. BEXTRA [Suspect]
     Indication: PAIN
     Route: 065
     Dates: start: 20040201, end: 20040601

REACTIONS (1)
  - ACUTE MYOCARDIAL INFARCTION [None]
